FAERS Safety Report 8814363 (Version 1)
Quarter: 2012Q4

REPORT INFORMATION
  Report Type: Spontaneous
  Country: ES (occurrence: None)
  Receive Date: 20120925
  Receipt Date: 20120925
  Transmission Date: 20130627
  Serious: Yes (Other)
  Sender: FDA-Public Use
  Company Number: FK201202681

PATIENT
  Age: 59 Year
  Sex: Female

DRUGS (2)
  1. AMIODARONE HCL [Suspect]
     Indication: VENTRICULAR TACHYCARDIA
     Route: 042
  2. MAGNESIUM [Concomitant]

REACTIONS (4)
  - Torsade de pointes [None]
  - Electrocardiogram QT prolonged [None]
  - Ventricular fibrillation [None]
  - Hypokalaemia [None]
